FAERS Safety Report 14402554 (Version 3)
Quarter: 2018Q1

REPORT INFORMATION
  Report Type: Report from Study
  Country: ES (occurrence: ES)
  Receive Date: 20180117
  Receipt Date: 20180315
  Transmission Date: 20180509
  Serious: Yes (Death, Hospitalization, Other)
  Sender: FDA-Public Use
  Company Number: ES-PFIZER INC-2017105027

PATIENT
  Age: 63 Year
  Sex: Female

DRUGS (4)
  1. HIBOR [Concomitant]
     Active Substance: BEMIPARIN SODIUM
     Indication: DEEP VEIN THROMBOSIS
     Dosage: 7500 IU, UNK
     Dates: start: 20161129, end: 20180107
  2. PALBOCICLIB [Suspect]
     Active Substance: PALBOCICLIB
     Indication: BREAST CANCER METASTATIC
     Dosage: 125 MG, DAILY
     Route: 048
     Dates: start: 20161121, end: 20170303
  3. FASLODEX [Concomitant]
     Active Substance: FULVESTRANT
     Indication: BREAST CANCER
     Dosage: 500 MG, CYCLIC (EACH TWO WEEKS)
     Route: 030
     Dates: start: 20161121, end: 20171218
  4. PALBOCICLIB [Suspect]
     Active Substance: PALBOCICLIB
     Dosage: 125 MG, DAILY
     Route: 048
     Dates: start: 20170322, end: 20171218

REACTIONS (12)
  - Pain in extremity [Recovered/Resolved with Sequelae]
  - Respiratory failure [Fatal]
  - Pyrexia [Not Recovered/Not Resolved]
  - Mucosal inflammation [Recovered/Resolved]
  - Pulmonary embolism [Not Recovered/Not Resolved]
  - Spinal cord compression [Recovered/Resolved with Sequelae]
  - Lung infection [Not Recovered/Not Resolved]
  - Dyspnoea [Not Recovered/Not Resolved]
  - Anaemia [Recovering/Resolving]
  - Neutrophil count decreased [Recovered/Resolved with Sequelae]
  - Multiple organ dysfunction syndrome [Fatal]
  - White blood cell count decreased [Recovered/Resolved with Sequelae]

NARRATIVE: CASE EVENT DATE: 20170303
